FAERS Safety Report 15925880 (Version 2)
Quarter: 2019Q1

REPORT INFORMATION
  Report Type: Spontaneous
  Country: US (occurrence: US)
  Receive Date: 20190206
  Receipt Date: 20190212
  Transmission Date: 20190417
  Serious: Yes (Hospitalization, Other)
  Sender: FDA-Public Use
  Company Number: US-DRREDDYS-USA/USA/18/0105752

PATIENT
  Age: 34 Year
  Sex: Female

DRUGS (1)
  1. PANTOPRAZOLE [Suspect]
     Active Substance: PANTOPRAZOLE
     Indication: REFLUX GASTRITIS
     Route: 065

REACTIONS (4)
  - Hypotension [Recovered/Resolved]
  - Staphylococcal infection [Recovered/Resolved]
  - Cardiovascular disorder [Recovered/Resolved]
  - Acute generalised exanthematous pustulosis [Recovered/Resolved]
